FAERS Safety Report 8958623 (Version 1)
Quarter: 2012Q4

REPORT INFORMATION
  Report Type: Spontaneous
  Country: US (occurrence: None)
  Receive Date: 20121206
  Receipt Date: 20121206
  Transmission Date: 20130627
  Serious: Yes (Life-Threatening, Hospitalization, Disabling, Other)
  Sender: FDA-Public Use
  Company Number: None

PATIENT
  Age: 27 Year
  Sex: Female
  Weight: 77.11 kg

DRUGS (4)
  1. OXYCODONE W/APAP [Suspect]
     Indication: KNEE OPERATION
     Dates: start: 20120929, end: 20121002
  2. OXYCODONE W/APAP [Suspect]
     Indication: POSTOPERATIVE CARE
     Dates: start: 20120929, end: 20121002
  3. PIROXICAM [Suspect]
     Indication: KNEE OPERATION
     Dates: start: 20120929, end: 20121002
  4. PIROXICAM [Suspect]
     Indication: POSTOPERATIVE CARE
     Dates: start: 20120929, end: 20121002

REACTIONS (20)
  - Presyncope [None]
  - Dyspnoea [None]
  - Dyspnoea [None]
  - Paraesthesia [None]
  - Burning sensation [None]
  - Pain [None]
  - Hypoaesthesia [None]
  - Hypoaesthesia [None]
  - Hypoaesthesia [None]
  - Pharyngeal hypoaesthesia [None]
  - Hypopnoea [None]
  - Chest discomfort [None]
  - Dysuria [None]
  - Cystitis [None]
  - Dysphagia [None]
  - Heart rate irregular [None]
  - Heart rate decreased [None]
  - Feeling abnormal [None]
  - Mental impairment [None]
  - Respiratory disorder [None]
